FAERS Safety Report 10162492 (Version 1)
Quarter: 2014Q2

REPORT INFORMATION
  Report Type: Report from Study
  Country: DE (occurrence: None)
  Receive Date: 20140507
  Receipt Date: 20140507
  Transmission Date: 20141212
  Serious: Yes (Other)
  Sender: FDA-Public Use
  Company Number: 2014-19448

PATIENT
  Age: 81 Year
  Sex: Male

DRUGS (1)
  1. EYELEA (AFLIBERCEPT) INJECTION [Suspect]
     Indication: AGE-RELATED MACULAR DEGENERATION
     Dosage: Q6 WEEKS IN RIGHT EYE
     Route: 031
     Dates: start: 20140108

REACTIONS (7)
  - Eye pain [None]
  - Eye haemorrhage [None]
  - Eye movement disorder [None]
  - Foreign body sensation in eyes [None]
  - Rhinorrhoea [None]
  - Bone pain [None]
  - Inappropriate schedule of drug administration [None]
